FAERS Safety Report 4746867-9 (Version None)
Quarter: 2005Q3

REPORT INFORMATION
  Report Type: 
  Country: None (occurrence: None)
  Receive Date: 20050817
  Receipt Date: 20050217
  Transmission Date: 20060218
  Serious: Yes (Hospitalization, Disabling, Other)
  Sender: FDA-Public Use
  Company Number: FRWYE438518FEB05

PATIENT
  Sex: Female

DRUGS (2)
  1. ENBREL [Suspect]
     Indication: ANKYLOSING SPONDYLITIS
     Route: 058
     Dates: start: 20041105, end: 20050104
  2. PURINETHOL [Suspect]
     Route: 048
     Dates: start: 20041105, end: 20050104

REACTIONS (8)
  - BALANCE DISORDER [None]
  - DEAFNESS NEUROSENSORY [None]
  - DEMYELINATION [None]
  - DIFFICULTY IN WALKING [None]
  - FACIAL PAIN [None]
  - HYPOAESTHESIA [None]
  - PARAESTHESIA [None]
  - VERTIGO [None]
